FAERS Safety Report 5282484-2 (Version None)
Quarter: 2007Q1

REPORT INFORMATION
  Report Type: 
  Country: None (occurrence: None)
  Receive Date: 20070326
  Receipt Date: 20070312
  Transmission Date: 20070707
  Serious: Yes (Hospitalization)
  Sender: FDA-Public Use
  Company Number: 011733

PATIENT
  Age: 49 Year
  Sex: Female
  Weight: 60.8 kg

DRUGS (7)
  1. ESTRADIOL [Suspect]
     Indication: HORMONE REPLACEMENT THERAPY
     Dosage: 1 TABLET, QD, ORAL
     Route: 048
     Dates: start: 20061212, end: 20061218
  2. PRILOSEC [Concomitant]
  3. ZYRTEC [Concomitant]
  4. SINGULAIR [Concomitant]
  5. NORVASC [Concomitant]
  6. LIPITOR [Concomitant]
  7. ELAVIL [Concomitant]

REACTIONS (2)
  - MIGRAINE [None]
  - PELVIC INFECTION [None]
